FAERS Safety Report 12716936 (Version 1)
Quarter: 2016Q3

REPORT INFORMATION
  Report Type: Report from Study
  Country: US (occurrence: US)
  Receive Date: 20160906
  Receipt Date: 20160906
  Transmission Date: 20161109
  Serious: Yes (Hospitalization, Other)
  Sender: FDA-Public Use
  Company Number: US-GILEAD-2016-0230384

PATIENT
  Age: 68 Year
  Sex: Female

DRUGS (2)
  1. AMBRISENTAN [Suspect]
     Active Substance: AMBRISENTAN
     Indication: PULMONARY HYPERTENSION
     Dosage: 5 MG, QD
     Route: 065
     Dates: start: 201606
  2. AMBRISENTAN [Suspect]
     Active Substance: AMBRISENTAN
     Indication: ATRIAL SEPTAL DEFECT

REACTIONS (2)
  - Hypoxia [Unknown]
  - Pneumonia [Unknown]
